FAERS Safety Report 7306183-8 (Version None)
Quarter: 2011Q1

REPORT INFORMATION
  Report Type: 
  Country: None (occurrence: None)
  Receive Date: 20110222
  Receipt Date: 20110207
  Transmission Date: 20110831
  Serious: Yes (Death, Hospitalization)
  Sender: FDA-Public Use
  Company Number: US-ELI_LILLY_AND_COMPANY-US201011005880

PATIENT
  Sex: Male
  Weight: 79.365 kg

DRUGS (30)
  1. FOLIC ACID [Concomitant]
     Indication: PREMEDICATION
     Dosage: 1000 MG, DAILY (1/D)
     Route: 048
     Dates: start: 20100920
  2. DEXAMETHASONE [Concomitant]
     Indication: PREMEDICATION
     Dosage: 4 MG, 2/D
     Route: 048
     Dates: start: 20100926
  3. PEMETREXED [Suspect]
     Indication: NON-SMALL CELL LUNG CANCER
     Dosage: 500 MG/M2, EVERY 21 DAYS
     Route: 042
     Dates: start: 20100927, end: 20101018
  4. LOVASTATIN [Concomitant]
     Indication: HYPERLIPIDAEMIA
     Dosage: 40 MG, DAILY (1/D)
     Route: 048
     Dates: start: 20090618
  5. LEVAQUIN [Concomitant]
     Indication: SEPSIS
     Route: 042
  6. MORPHINE [Concomitant]
  7. SODIUM BICARBONATE [Concomitant]
     Indication: ACIDOSIS
  8. ATIVAN [Concomitant]
     Indication: DYSPNOEA
  9. VITAMIN B-12 [Concomitant]
     Indication: PREMEDICATION
     Dates: start: 20100920
  10. DRONABINOL [Concomitant]
     Dosage: 5 MG, 3/D
     Route: 048
  11. CALCIUM GLUCONATE [Concomitant]
     Indication: HYPOCALCAEMIA
  12. DILANTIN [Concomitant]
     Indication: METASTASIS
  13. ATROVENT [Concomitant]
     Indication: DYSPNOEA
     Dosage: UNK, EVERY 4 HRS
     Route: 055
  14. ALBUTEROL [Concomitant]
     Indication: DYSPNOEA
     Dosage: UNK, EVERY 4 HRS
     Route: 055
  15. HUMALOG [Concomitant]
     Indication: DIABETES MELLITUS
  16. LEVOPHED [Concomitant]
     Indication: HYPOTENSION
  17. FUROSEMIDE [Concomitant]
     Indication: OEDEMA
     Dosage: 40 MG, DAILY (1/D)
     Route: 048
     Dates: start: 20100801
  18. TYLENOL                                 /SCH/ [Concomitant]
     Indication: PAIN
     Dosage: 650 MG, AS NEEDED
     Route: 054
  19. CLINDAMYCIN [Concomitant]
     Indication: SEPSIS
     Route: 042
  20. MARINOL [Concomitant]
     Indication: DECREASED APPETITE
  21. LASIX [Concomitant]
     Indication: FLUID RETENTION
  22. OXYGEN [Concomitant]
  23. CARBOPLATIN [Suspect]
     Indication: NON-SMALL CELL LUNG CANCER
     Dosage: 6 AUC, EVERY 21 DAYS
     Route: 042
     Dates: start: 20100927, end: 20101018
  24. ATROVENT [Concomitant]
     Indication: CHRONIC OBSTRUCTIVE PULMONARY DISEASE
     Dosage: 17 UG, AS NEEDED
     Route: 055
     Dates: start: 20100630
  25. ACETAMINOPHEN AND HYDROCODONE BITARTRATE [Concomitant]
     Indication: PAIN
     Dosage: UNK, DAILY (1/D)
     Route: 048
     Dates: start: 20100901
  26. VANCOMYCIN [Concomitant]
     Indication: SEPSIS
  27. RANITIDINE [Concomitant]
     Indication: REFLUX OESOPHAGITIS
     Dosage: 150 MG, AS NEEDED
     Route: 048
     Dates: start: 20100901
  28. DILANTIN [Concomitant]
     Indication: CONVULSION
     Dosage: 100 MG, 3/D
     Dates: start: 20100801, end: 20101027
  29. DILANTIN [Concomitant]
     Dosage: 100 MG, 2/D
     Dates: start: 20101027
  30. SOLU-MEDROL [Concomitant]
     Indication: DYSPNOEA

REACTIONS (3)
  - DYSPNOEA [None]
  - PNEUMONIA [None]
  - RENAL FAILURE [None]
